FAERS Safety Report 15879730 (Version 1)
Quarter: 2019Q1

REPORT INFORMATION
  Report Type: Spontaneous
  Country: US (occurrence: US)
  Receive Date: 20190127
  Receipt Date: 20190127
  Transmission Date: 20190417
  Serious: Yes (Other)
  Sender: FDA-Public Use
  Company Number: None

PATIENT
  Age: 41 Year
  Sex: Female
  Weight: 52.2 kg

DRUGS (1)
  1. SOUND BODY SLEEP AID [Suspect]
     Active Substance: DIPHENHYDRAMINE HYDROCHLORIDE
     Indication: INSOMNIA
     Dosage: ?          QUANTITY:2 TABLET(S);?
     Route: 048
     Dates: start: 20181018, end: 20190119

REACTIONS (11)
  - Loss of personal independence in daily activities [None]
  - Suicidal ideation [None]
  - Palpitations [None]
  - Negative thoughts [None]
  - Anger [None]
  - Anxiety [None]
  - Tachyphrenia [None]
  - Dyspnoea exertional [None]
  - Panic attack [None]
  - Crying [None]
  - Insomnia [None]

NARRATIVE: CASE EVENT DATE: 20181020
